FAERS Safety Report 21832115 (Version 1)
Quarter: 2023Q1

REPORT INFORMATION
  Report Type: Spontaneous
  Country: DE (occurrence: DE)
  Receive Date: 20230106
  Receipt Date: 20230106
  Transmission Date: 20230417
  Serious: Yes (Death, Life-Threatening, Hospitalization, Other)
  Sender: FDA-Public Use
  Company Number: None

PATIENT
  Sex: Female

DRUGS (6)
  1. SPIRONOLACTONE [Suspect]
     Active Substance: SPIRONOLACTONE
     Indication: Renal failure
     Dosage: UNIT DOSE: 25 MG , FREQUENCY TIME : 1 DAY, THERAPY START DATE : NASK
     Dates: end: 20220928
  2. SPIRONOLACTONE [Suspect]
     Active Substance: SPIRONOLACTONE
     Indication: Cardiac failure
  3. TORSEMIDE [Suspect]
     Active Substance: TORSEMIDE
     Indication: Renal failure
     Dosage: UNIT DOSE: 20 MG , FREQUENCY TIME : 1 DAY, THERAPY START DATE  : NASK
     Dates: end: 20220831
  4. TORSEMIDE [Suspect]
     Active Substance: TORSEMIDE
     Indication: Cardiac failure
  5. EMPAGLIFLOZIN [Suspect]
     Active Substance: EMPAGLIFLOZIN
     Indication: Type 2 diabetes mellitus
     Dosage: UNIT DOSE: 10 MG , FREQUENCY TIME : 1 DAY, THERAPY START DATE : NASK
     Dates: end: 20220831
  6. NALOXONE HYDROCHLORIDE\TILIDINE HYDROCHLORIDE [Concomitant]
     Active Substance: NALOXONE HYDROCHLORIDE\TILIDINE HYDROCHLORIDE
     Indication: Analgesic therapy
     Dosage: UNIT DOSE: 50 MG, FREQUENCY TIME : 1 DAY

REACTIONS (3)
  - Acute kidney injury [Fatal]
  - Metabolic acidosis [Fatal]
  - Hypoglycaemia [Unknown]
